FAERS Safety Report 6235939-8 (Version None)
Quarter: 2009Q2

REPORT INFORMATION
  Report Type: 
  Country: None (occurrence: None)
  Receive Date: 20090619
  Receipt Date: 20090609
  Transmission Date: 20091009
  Serious: Yes (Other)
  Sender: FDA-Public Use
  Company Number: PHHY2009CA23346

PATIENT
  Sex: Male

DRUGS (1)
  1. LAMISIL [Suspect]
     Dosage: UNK
     Route: 048
     Dates: start: 20080601

REACTIONS (2)
  - CHOLECYSTECTOMY [None]
  - DRUG INEFFECTIVE [None]
